FAERS Safety Report 10627717 (Version 1)
Quarter: 2014Q4

REPORT INFORMATION
  Report Type: Spontaneous
  Country: US (occurrence: None)
  Receive Date: 20141203
  Receipt Date: 20141203
  Transmission Date: 20150529
  Serious: No
  Sender: FDA-Public Use
  Company Number: None

PATIENT
  Age: 71 Year
  Sex: Female

DRUGS (3)
  1. LOW THYROID [Concomitant]
  2. MCLIZINE [Concomitant]
  3. METOPROLOL TARTRATE 25 MGS [Suspect]
     Active Substance: METOPROLOL TARTRATE

REACTIONS (5)
  - Poor quality drug administered [None]
  - Dizziness [None]
  - Drug ineffective [None]
  - Product substitution issue [None]
  - Blood pressure increased [None]

NARRATIVE: CASE EVENT DATE: 2014
